FAERS Safety Report 12801220 (Version 1)
Quarter: 2016Q4

REPORT INFORMATION
  Report Type: Report from Study
  Country: US (occurrence: US)
  Receive Date: 20161003
  Receipt Date: 20161003
  Transmission Date: 20170207
  Serious: Yes (Hospitalization, Other)
  Sender: FDA-Public Use
  Company Number: US-ROCHE-1241937

PATIENT
  Age: 75 Year
  Sex: Female
  Weight: 65 kg

DRUGS (4)
  1. BEVACIZUMAB [Suspect]
     Active Substance: BEVACIZUMAB
     Indication: FALLOPIAN TUBE CANCER
     Dosage: 15 MG/KG OVER 30 TO 90 MINUTES ON DAY 1, COURSE 1
     Route: 042
     Dates: start: 20130418
  2. FOSBRETABULIN TROMETHAMINE [Suspect]
     Active Substance: FOSBRETABULIN TROMETHAMINE
     Dosage: COURSE 2
     Route: 042
     Dates: start: 20130509
  3. BEVACIZUMAB [Suspect]
     Active Substance: BEVACIZUMAB
     Dosage: COURSE 2
     Route: 042
     Dates: start: 20130509
  4. FOSBRETABULIN TROMETHAMINE [Suspect]
     Active Substance: FOSBRETABULIN TROMETHAMINE
     Indication: FALLOPIAN TUBE CANCER
     Dosage: 60MG/M IV OVER 10 MINUTE ON A DAY, COURSE 1
     Route: 042
     Dates: start: 20130418

REACTIONS (3)
  - Diverticulitis [Unknown]
  - Leukocytosis [Unknown]
  - Abdominal pain [Unknown]

NARRATIVE: CASE EVENT DATE: 20130518
